FAERS Safety Report 7890098-0 (Version None)
Quarter: 2011Q4

REPORT INFORMATION
  Report Type: 
  Country: None (occurrence: None)
  Receive Date: 20111103
  Receipt Date: 20111103
  Transmission Date: 20120403
  Serious: Yes (Congenital Anomaly)
  Sender: FDA-Public Use
  Company Number: GB-GILEAD-2011-0044197

PATIENT
  Sex: Male

DRUGS (3)
  1. EMTRICITABINE/TENOFOVIR DISOPROXIL FUMARATE [Suspect]
     Indication: HIV INFECTION
     Dosage: 1 DF, QD
     Route: 064
     Dates: start: 20100301, end: 20110901
  2. ATAZANAVIR [Concomitant]
     Indication: HIV INFECTION
     Route: 064
     Dates: start: 20100801, end: 20110901
  3. RITONAVIR [Concomitant]
     Indication: HIV INFECTION
     Route: 064
     Dates: start: 20100801, end: 20110901

REACTIONS (1)
  - TERATOMA [None]
